FAERS Safety Report 8480654-3 (Version None)
Quarter: 2012Q3

REPORT INFORMATION
  Report Type: 
  Country: None (occurrence: None)
  Receive Date: 20120702
  Receipt Date: 20120629
  Transmission Date: 20120928
  Serious: No
  Sender: FDA-Public Use
  Company Number: US-PFIZER INC-2012157062

PATIENT
  Sex: Male
  Weight: 98.413 kg

DRUGS (2)
  1. CHANTIX [Suspect]
     Indication: SMOKING CESSATION THERAPY
     Dosage: 0.5 MG, DAILY
     Dates: start: 20120501, end: 20120101
  2. CHANTIX [Suspect]
     Dosage: UNK
     Dates: start: 20120101, end: 20120629

REACTIONS (1)
  - VERTIGO [None]
